FAERS Safety Report 4830835-2 (Version None)
Quarter: 2005Q4

REPORT INFORMATION
  Report Type: 
  Country: None (occurrence: None)
  Receive Date: 20051117
  Receipt Date: 20051031
  Transmission Date: 20060501
  Serious: Yes (Disabling)
  Sender: FDA-Public Use
  Company Number: AU-MERCK-0510AUS00156

PATIENT
  Age: 79 Year
  Sex: Male

DRUGS (1)
  1. COSOPT [Suspect]
     Indication: GLAUCOMA
     Route: 047

REACTIONS (4)
  - EYE INFECTION BACTERIAL [None]
  - EYE PAIN [None]
  - FOREIGN BODY IN EYE [None]
  - PHOTOSENSITIVITY REACTION [None]
